FAERS Safety Report 6739840-2 (Version None)
Quarter: 2010Q2

REPORT INFORMATION
  Report Type: 
  Country: None (occurrence: None)
  Receive Date: 20100525
  Receipt Date: 20100514
  Transmission Date: 20101027
  Serious: Yes (Other)
  Sender: FDA-Public Use
  Company Number: PHHY2010KR31795

PATIENT
  Sex: Female

DRUGS (2)
  1. ACLASTA [Suspect]
     Indication: OSTEOPOROSIS
     Dosage: 5 MG
  2. ACLASTA [Suspect]
     Dosage: 5 MG
     Dates: start: 20100402

REACTIONS (1)
  - COMPRESSION FRACTURE [None]
